FAERS Safety Report 23406457 (Version 1)
Quarter: 2024Q1

REPORT INFORMATION
  Report Type: Spontaneous
  Country: US (occurrence: US)
  Receive Date: 20240116
  Receipt Date: 20240116
  Transmission Date: 20240410
  Serious: Yes (Other)
  Sender: FDA-Public Use
  Company Number: US-NOVOPROD-1118375

PATIENT
  Sex: Female
  Weight: 108.84 kg

DRUGS (3)
  1. OZEMPIC [Suspect]
     Active Substance: SEMAGLUTIDE
     Indication: Type 2 diabetes mellitus
     Dosage: 0.25 MG
     Route: 058
     Dates: start: 20230702, end: 2023
  2. OZEMPIC [Suspect]
     Active Substance: SEMAGLUTIDE
     Dosage: 0.5 MG
     Route: 058
     Dates: start: 2023
  3. METFORMIN [Concomitant]
     Active Substance: METFORMIN HYDROCHLORIDE
     Indication: Type 2 diabetes mellitus
     Dosage: 500 MG, BID

REACTIONS (7)
  - Diverticulum [Unknown]
  - Abdominal hernia [Not Recovered/Not Resolved]
  - Food craving [Unknown]
  - Hypophagia [Unknown]
  - Blood glucose decreased [Unknown]
  - Constipation [Not Recovered/Not Resolved]
  - Drug titration error [Recovered/Resolved]

NARRATIVE: CASE EVENT DATE: 20230101
